FAERS Safety Report 9015999 (Version 1)
Quarter: 2013Q1

REPORT INFORMATION
  Report Type: Spontaneous
  Country: CA (occurrence: CA)
  Receive Date: 20130116
  Receipt Date: 20130116
  Transmission Date: 20140127
  Serious: Yes (Other)
  Sender: FDA-Public Use
  Company Number: CA-GLAXOSMITHKLINE-A0983206A

PATIENT
  Age: 51 Year
  Sex: Female
  Weight: 101 kg

DRUGS (6)
  1. BENLYSTA [Suspect]
     Indication: SYSTEMIC LUPUS ERYTHEMATOSUS
     Dosage: 1050MG UNKNOWN
     Route: 042
     Dates: start: 20120620
  2. PREDNISONE [Concomitant]
     Indication: SYSTEMIC LUPUS ERYTHEMATOSUS
     Dosage: 10MG UNKNOWN
     Route: 048
  3. HYDROXYCHLOROQUINE [Concomitant]
     Indication: PRODUCT USED FOR UNKNOWN INDICATION
     Dosage: 400MG PER DAY
     Route: 065
  4. LOSEC [Concomitant]
     Indication: ILL-DEFINED DISORDER
     Dosage: 20MG TWICE PER DAY
     Route: 065
  5. ATACAND [Concomitant]
     Indication: HYPERTENSION
     Dosage: 18MG PER DAY
     Route: 065
  6. DETROL LA [Concomitant]
     Indication: POLLAKIURIA
     Route: 048

REACTIONS (16)
  - Nausea [Recovered/Resolved]
  - Dizziness [Recovered/Resolved]
  - Chest pain [Recovered/Resolved]
  - Headache [Recovered/Resolved]
  - Bladder pain [Recovering/Resolving]
  - Ovarian cyst ruptured [Recovering/Resolving]
  - Pain of skin [Recovered/Resolved]
  - Burning sensation [Unknown]
  - Dry eye [Not Recovered/Not Resolved]
  - Dry mouth [Not Recovered/Not Resolved]
  - Chest discomfort [Not Recovered/Not Resolved]
  - Hyperaesthesia [Unknown]
  - Intestinal stenosis [Unknown]
  - Abdominal pain lower [Unknown]
  - Bladder disorder [Unknown]
  - Pneumonia [Unknown]
